FAERS Safety Report 11804408 (Version 1)
Quarter: 2015Q4

REPORT INFORMATION
  Report Type: Spontaneous
  Country: US (occurrence: US)
  Receive Date: 20151204
  Receipt Date: 20151204
  Transmission Date: 20160305
  Serious: No
  Sender: FDA-Public Use
  Company Number: US-GLAXOSMITHKLINE-US2013GSK000395

PATIENT
  Age: 42 Year
  Sex: Female
  Weight: 68.27 kg

DRUGS (5)
  1. WELLBUTRIN XL [Suspect]
     Active Substance: BUPROPION HYDROCHLORIDE
     Indication: DISTURBANCE IN ATTENTION
     Dosage: 150 MG, QD
     Route: 048
     Dates: start: 201302
  2. CLONAZEPAM. [Concomitant]
     Active Substance: CLONAZEPAM
  3. CLARINEX [Concomitant]
     Active Substance: DESLORATADINE
  4. TOPAMAX [Concomitant]
     Active Substance: TOPIRAMATE
  5. LORTAB (ACETAMINOPHEN + HYDROCODONE) [Concomitant]

REACTIONS (3)
  - Product use issue [Unknown]
  - Urine amphetamine positive [Unknown]
  - Ligament sprain [Unknown]

NARRATIVE: CASE EVENT DATE: 201303
